FAERS Safety Report 15931202 (Version 6)
Quarter: 2019Q2

REPORT INFORMATION
  Report Type: Report from Study
  Country: CO (occurrence: CO)
  Receive Date: 20190207
  Receipt Date: 20190508
  Transmission Date: 20190711
  Serious: Yes (Other)
  Sender: FDA-Public Use
  Company Number: CO-ASTELLAS-2019US003497

PATIENT
  Age: 82 Year
  Sex: Male
  Weight: 62 kg

DRUGS (1)
  1. ENZALUTAMIDE [Suspect]
     Active Substance: ENZALUTAMIDE
     Indication: HORMONE-REFRACTORY PROSTATE CANCER
     Route: 048
     Dates: start: 20180505

REACTIONS (18)
  - Blood sodium decreased [Not Recovered/Not Resolved]
  - Blood calcium decreased [Not Recovered/Not Resolved]
  - Aspiration [Unknown]
  - Pneumonia [Not Recovered/Not Resolved]
  - Pyrexia [Recovered/Resolved]
  - Wrong technique in product usage process [Not Recovered/Not Resolved]
  - Pain in extremity [Recovered/Resolved]
  - Prostatic specific antigen increased [Not Recovered/Not Resolved]
  - Motor dysfunction [Not Recovered/Not Resolved]
  - Tremor [Recovered/Resolved]
  - Feeding disorder [Not Recovered/Not Resolved]
  - Somnolence [Not Recovered/Not Resolved]
  - Paresis anal sphincter [Not Recovered/Not Resolved]
  - Chest pain [Not Recovered/Not Resolved]
  - Dysstasia [Unknown]
  - Prostate cancer [Not Recovered/Not Resolved]
  - Back pain [Not Recovered/Not Resolved]
  - Asthenia [Not Recovered/Not Resolved]

NARRATIVE: CASE EVENT DATE: 201805
